FAERS Safety Report 10636074 (Version 2)
Quarter: 2014Q4

REPORT INFORMATION
  Report Type: Spontaneous
  Country: US (occurrence: US)
  Receive Date: 20141205
  Receipt Date: 20141217
  Transmission Date: 20150529
  Serious: Yes (Death)
  Sender: FDA-Public Use
  Company Number: US-ACTELION-A-NJ2014-109245

PATIENT
  Age: 69 Year
  Sex: Female

DRUGS (2)
  1. VELETRI [Suspect]
     Active Substance: EPOPROSTENOL
     Indication: PULMONARY ARTERIAL HYPERTENSION
     Dosage: 94 NG/KG, PER MIN
     Route: 042
     Dates: start: 20131118, end: 20141024
  2. OXYGEN. [Concomitant]
     Active Substance: OXYGEN
     Dosage: 5 L/MIN, HS AND QPM

REACTIONS (2)
  - Pulmonary arterial hypertension [Fatal]
  - Condition aggravated [Fatal]
